FAERS Safety Report 13256803 (Version 2)
Quarter: 2017Q1

REPORT INFORMATION
  Report Type: Spontaneous
  Country: US (occurrence: US)
  Receive Date: 20170221
  Receipt Date: 20170315
  Transmission Date: 20170428
  Serious: Yes (Other)
  Sender: FDA-Public Use
  Company Number: US-AKORN PHARMACEUTICALS-2017AKN00172

PATIENT
  Sex: Male

DRUGS (3)
  1. AVAR LS GREEN CREAM [Concomitant]
     Indication: ERYTHEMA
     Dosage: UNK, 1X/DAY
  2. ABSORICA [Suspect]
     Active Substance: ISOTRETINOIN
     Indication: ACNE
     Dosage: 35 MG, 2X/DAY
     Route: 048
     Dates: start: 20161129, end: 20170104
  3. MYORISAN [Suspect]
     Active Substance: ISOTRETINOIN
     Indication: ACNE
     Dosage: 40 MG, 2X/DAY
     Route: 048
     Dates: start: 201701, end: 20170203

REACTIONS (3)
  - Anxiety [Unknown]
  - Flat affect [Unknown]
  - Fatigue [Unknown]

NARRATIVE: CASE EVENT DATE: 2017
